FAERS Safety Report 12218272 (Version 1)
Quarter: 2016Q1

REPORT INFORMATION
  Report Type: Spontaneous
  Country: RO (occurrence: RO)
  Receive Date: 20160329
  Receipt Date: 20160329
  Transmission Date: 20160526
  Serious: Yes (Hospitalization, Other)
  Sender: FDA-Public Use
  Company Number: RO-ABBVIE-16K-135-1588616-00

PATIENT
  Age: 60 Year
  Sex: Female
  Weight: 89 kg

DRUGS (7)
  1. HUMIRA [Suspect]
     Active Substance: ADALIMUMAB
     Indication: RHEUMATOID ARTHRITIS
     Route: 058
     Dates: start: 20150413, end: 20151222
  2. METHOTREXATE [Suspect]
     Active Substance: METHOTREXATE
     Indication: RHEUMATOID ARTHRITIS
     Route: 058
     Dates: start: 20090121, end: 20151222
  3. MEDROL [Concomitant]
     Active Substance: METHYLPREDNISOLONE
     Indication: PRODUCT USED FOR UNKNOWN INDICATION
  4. HUMIRA [Suspect]
     Active Substance: ADALIMUMAB
     Route: 058
     Dates: start: 20160131
  5. NOLIPREL [Concomitant]
     Indication: ESSENTIAL HYPERTENSION
     Dosage: 5 MG/1,25 MG
     Route: 048
     Dates: start: 20070312
  6. METHOTREXATE [Suspect]
     Active Substance: METHOTREXATE
     Route: 058
     Dates: start: 20160131
  7. DICLOREUM [Concomitant]
     Active Substance: DICLOFENAC SODIUM
     Indication: RHEUMATOID ARTHRITIS
     Dosage: 1-2 TABLET/DAY
     Route: 048
     Dates: start: 20141215

REACTIONS (10)
  - Knee arthroplasty [Unknown]
  - Lymphopenia [Unknown]
  - Skin exfoliation [Recovering/Resolving]
  - Herpes zoster [Recovering/Resolving]
  - Pain in extremity [Unknown]
  - Obesity [Unknown]
  - Mobility decreased [Unknown]
  - Joint crepitation [Unknown]
  - Cellulitis [Recovered/Resolved]
  - Arthralgia [Unknown]

NARRATIVE: CASE EVENT DATE: 2015
